FAERS Safety Report 7977333-5 (Version None)
Quarter: 2011Q4

REPORT INFORMATION
  Report Type: 
  Country: None (occurrence: None)
  Receive Date: 20111213
  Receipt Date: 20050726
  Transmission Date: 20120403
  Serious: Yes (Death)
  Sender: FDA-Public Use
  Company Number: PHHY2005CL007068

PATIENT
  Sex: Female

DRUGS (1)
  1. MIACALCIN [Suspect]

REACTIONS (1)
  - DEATH [None]
